FAERS Safety Report 5033389-3 (Version None)
Quarter: 2006Q2

REPORT INFORMATION
  Report Type: 
  Country: None (occurrence: None)
  Receive Date: 20060621
  Receipt Date: 20060612
  Transmission Date: 20061013
  Serious: Yes (Hospitalization)
  Sender: FDA-Public Use
  Company Number: 20052495

PATIENT
  Sex: Female

DRUGS (4)
  1. LIORESAL [Suspect]
     Indication: MUSCLE SPASTICITY
     Dosage: MCG, DAILY, INTRATHECAL
     Route: 037
  2. IV VALIUM [Concomitant]
  3. MORPHINE [Concomitant]
  4. BENADRYL [Concomitant]

REACTIONS (16)
  - BACK PAIN [None]
  - CATHETER RELATED COMPLICATION [None]
  - DEVICE BREAKAGE [None]
  - DIARRHOEA [None]
  - DRUG WITHDRAWAL SYNDROME [None]
  - FOREIGN BODY TRAUMA [None]
  - MEDICAL DEVICE COMPLICATION [None]
  - MENTAL STATUS CHANGES [None]
  - MUSCLE SPASMS [None]
  - MUSCLE SPASTICITY [None]
  - OVERDOSE [None]
  - PROCEDURAL COMPLICATION [None]
  - PRURITUS [None]
  - PYREXIA [None]
  - REBOUND EFFECT [None]
  - UNDERDOSE [None]
